FAERS Safety Report 9944014 (Version 2)
Quarter: 2014Q1

REPORT INFORMATION
  Report Type: Spontaneous
  Country: US (occurrence: US)
  Receive Date: 20140303
  Receipt Date: 20140303
  Transmission Date: 20141002
  Serious: No
  Sender: FDA-Public Use
  Company Number: US-GILEAD-2013-0068170

PATIENT
  Sex: Female

DRUGS (3)
  1. RANEXA [Suspect]
     Indication: CHEST PAIN
     Dosage: 500 MG, BID
     Route: 048
  2. RANEXA [Suspect]
     Indication: UNEVALUABLE EVENT
  3. CARDIZEM                           /00489701/ [Concomitant]
     Dosage: 30 G, BID
     Route: 048

REACTIONS (1)
  - Deafness [Recovered/Resolved]
